FAERS Safety Report 10381309 (Version 2)
Quarter: 2014Q3

REPORT INFORMATION
  Report Type: Spontaneous
  Country: CA (occurrence: None)
  Receive Date: 20140811
  Receipt Date: 20140812
  Transmission Date: 20150326
  Serious: Yes (Other)
  Sender: FDA-Public Use
  Company Number: CA-016697

PATIENT
  Age: 51 Year
  Sex: Male

DRUGS (1)
  1. FIRMAGON [Suspect]
     Active Substance: DEGARELIX ACETATE
     Indication: PROSTATE CANCER
     Route: 058
     Dates: start: 20140403

REACTIONS (8)
  - Urticaria [None]
  - Scrotal pain [None]
  - Testicular pain [None]
  - Chest discomfort [None]
  - Hot flush [None]
  - Condition aggravated [None]
  - Dyspnoea [None]
  - Injection site urticaria [None]
